FAERS Safety Report 7665093-7 (Version None)
Quarter: 2011Q3

REPORT INFORMATION
  Report Type: 
  Country: None (occurrence: None)
  Receive Date: 20110806
  Receipt Date: 20110502
  Transmission Date: 20111222
  Serious: No
  Sender: FDA-Public Use
  Company Number: US-ABBOTT-11P-163-0722846-00

PATIENT
  Sex: Male
  Weight: 90.8 kg

DRUGS (8)
  1. NIASPAN [Suspect]
     Indication: HIGH DENSITY LIPOPROTEIN DECREASED
     Dates: start: 20110328, end: 20110424
  2. RAMIPRIL [Concomitant]
     Indication: HYPERTENSION
  3. NIASPAN [Suspect]
     Dosage: 1000MG DAILY
     Dates: start: 20110425, end: 20110430
  4. NEXIUM [Concomitant]
     Indication: GASTRIC DISORDER
  5. TRILIPIX [Concomitant]
     Indication: HIGH DENSITY LIPOPROTEIN DECREASED
  6. ALLOPURINOL [Concomitant]
     Indication: GOUT
  7. CRESTOR [Concomitant]
     Indication: HIGH DENSITY LIPOPROTEIN DECREASED
  8. BYSTOLIC [Concomitant]
     Indication: HYPERTENSION

REACTIONS (1)
  - ABDOMINAL PAIN [None]
